FAERS Safety Report 9343603 (Version 3)
Quarter: 2013Q2

REPORT INFORMATION
  Report Type: Spontaneous
  Country: RU (occurrence: RU)
  Receive Date: 20130612
  Receipt Date: 20130621
  Transmission Date: 20140414
  Serious: Yes (Death, Other)
  Sender: FDA-Public Use
  Company Number: RU-ROCHE-1235625

PATIENT
  Age: 29 Year
  Sex: Male

DRUGS (3)
  1. PEGASYS [Suspect]
     Indication: CHRONIC HEPATITIS C
     Route: 065
     Dates: start: 20130606
  2. ALPHA D3-TEVA [Concomitant]
  3. URSOSAN [Concomitant]

REACTIONS (2)
  - Coronary artery insufficiency [Fatal]
  - Haemodialysis [Recovered/Resolved]
